FAERS Safety Report 8619055-3 (Version None)
Quarter: 2012Q3

REPORT INFORMATION
  Report Type: 
  Country: None (occurrence: None)
  Receive Date: 20120824
  Receipt Date: 20120816
  Transmission Date: 20120928
  Serious: Yes (Hospitalization, Other)
  Sender: FDA-Public Use
  Company Number: US-BAYER-2012-039068

PATIENT
  Age: 27 Year
  Sex: Female
  Weight: 99.773 kg

DRUGS (8)
  1. YAZ [Suspect]
     Indication: CONTRACEPTION
     Dosage: UNK
     Dates: start: 20080522, end: 20090208
  2. TRILEPTAL [Concomitant]
     Indication: BIPOLAR DISORDER
     Dosage: UNK
     Dates: start: 20060101
  3. ACETAMINOPHEN [Concomitant]
     Indication: PAIN
  4. IBUPROFEN [Concomitant]
     Indication: HEADACHE
  5. YASMIN [Suspect]
     Indication: CONTRACEPTION
     Dosage: UNK
     Dates: start: 20080522, end: 20090208
  6. ADDERALL [Concomitant]
     Indication: ATTENTION DEFICIT/HYPERACTIVITY DISORDER
     Dosage: UNK
     Dates: start: 20060101
  7. ACETAMINOPHEN [Concomitant]
     Indication: HEADACHE
  8. IBUPROFEN [Concomitant]
     Indication: PAIN

REACTIONS (5)
  - GALLBLADDER DISORDER [None]
  - HYSTERECTOMY [None]
  - OVARIAN CYST [None]
  - PAIN [None]
  - INJURY [None]
